FAERS Safety Report 17473355 (Version 1)
Quarter: 2020Q1

REPORT INFORMATION
  Report Type: Report from Study
  Country: CO (occurrence: CO)
  Receive Date: 20200228
  Receipt Date: 20200228
  Transmission Date: 20200409
  Serious: Yes (Hospitalization)
  Sender: FDA-Public Use
  Company Number: CO-JNJFOC-20191247664

PATIENT
  Age: 68 Year
  Sex: Female
  Weight: 80 kg

DRUGS (2)
  1. STELARA [Suspect]
     Active Substance: USTEKINUMAB
     Dosage: RECEIVED 5 DOSES OF USTEKINUMAB
     Route: 058
     Dates: start: 20160825
  2. STELARA [Suspect]
     Active Substance: USTEKINUMAB
     Indication: PSORIASIS
     Dosage: RECEIVED 5 DOSES OF USTEKINUMAB
     Route: 058
     Dates: start: 20140813, end: 20150320

REACTIONS (4)
  - Pneumonia [Recovered/Resolved]
  - Off label use [Unknown]
  - Therapeutic response decreased [Unknown]
  - Product use issue [Unknown]

NARRATIVE: CASE EVENT DATE: 20140814
